FAERS Safety Report 10692485 (Version 2)
Quarter: 2015Q2

REPORT INFORMATION
  Report Type: Report from Study
  Country: US (occurrence: US)
  Receive Date: 20150106
  Receipt Date: 20150429
  Transmission Date: 20150821
  Serious: Yes (Hospitalization)
  Sender: FDA-Public Use
  Company Number: PHEH2015US000444

PATIENT
  Age: 61 Year
  Sex: Male
  Weight: 98.87 kg

DRUGS (1)
  1. EXJADE [Suspect]
     Active Substance: DEFERASIROX
     Indication: MYELODYSPLASTIC SYNDROME
     Dosage: 1500 MG, QD (3 X 500 MG, TABLETS)
     Route: 048

REACTIONS (7)
  - Hypertension [Unknown]
  - Nephrolithiasis [Unknown]
  - Anaemia [Unknown]
  - Organ failure [Unknown]
  - Prostatic specific antigen increased [Unknown]
  - Laboratory test abnormal [Unknown]
  - Weight increased [Unknown]

NARRATIVE: CASE EVENT DATE: 2010
